FAERS Safety Report 9507878 (Version 1)
Quarter: 2013Q3

REPORT INFORMATION
  Report Type: Spontaneous
  Country: GB (occurrence: GB)
  Receive Date: 20130909
  Receipt Date: 20130909
  Transmission Date: 20140515
  Serious: Yes (Other)
  Sender: FDA-Public Use
  Company Number: GB-PFIZER INC-2013256627

PATIENT
  Age: 29 Year
  Sex: Female
  Weight: 84.36 kg

DRUGS (3)
  1. CHAMPIX [Suspect]
     Indication: SMOKING CESSATION THERAPY
     Route: 048
     Dates: start: 20130729, end: 20130812
  2. SALBUTAMOL SULFATE [Concomitant]
     Dates: start: 20030801
  3. FLUTIFORM [Concomitant]

REACTIONS (9)
  - Nightmare [Recovered/Resolved]
  - Paraesthesia [Not Recovered/Not Resolved]
  - Dizziness [Recovered/Resolved]
  - Headache [Recovering/Resolving]
  - Gait disturbance [Unknown]
  - Sensory disturbance [Unknown]
  - Sensation of heaviness [Unknown]
  - Ear discomfort [Unknown]
  - Presyncope [Unknown]
